FAERS Safety Report 6234597-6 (Version None)
Quarter: 2009Q2

REPORT INFORMATION
  Report Type: 
  Country: None (occurrence: None)
  Receive Date: 20090618
  Receipt Date: 20090610
  Transmission Date: 20091009
  Serious: Yes (Other)
  Sender: FDA-Public Use
  Company Number: US-GENENTECH-246527

PATIENT
  Sex: Female

DRUGS (11)
  1. OMALIZUMAB [Suspect]
     Indication: ASTHMA
     Dosage: 150 MG, Q4W
     Dates: start: 20060202
  2. PREDNISOLONE [Concomitant]
     Indication: GASTROENTERITIS EOSINOPHILIC
     Dosage: UNK
  3. LISINOPRIL [Concomitant]
     Indication: HYPERTENSION
  4. AMBIEN [Concomitant]
     Indication: INSOMNIA
     Dosage: UNK
  5. ZOLOFT [Concomitant]
     Indication: ANXIETY
     Dosage: UNK
  6. ZOLOFT [Concomitant]
     Indication: DEPRESSION
  7. ADVAIR HFA [Concomitant]
     Indication: ASTHMA
  8. RHINOCORT [Concomitant]
     Indication: HYPERSENSITIVITY
     Dosage: UNK
  9. PULMICORT-100 [Concomitant]
     Indication: ASTHMA
     Dosage: UNK
  10. NASONEX [Concomitant]
     Indication: HYPERSENSITIVITY
  11. VITAMIN TAB [Concomitant]
     Indication: PREGNANCY
     Dosage: UNK

REACTIONS (1)
  - CHOLECYSTITIS [None]
